FAERS Safety Report 6064594 (Version 21)
Quarter: 2013Q3

REPORT INFORMATION
  Report Type: Spontaneous
  Country: US (occurrence: US)
  Receive Date: 20060614
  Receipt Date: 20130830
  Transmission Date: 20140515
  Serious: Yes (Death, Hospitalization, Other)
  Sender: FDA-Public Use
  Company Number: PHEH2006US07279

PATIENT
  Age: 47 Year
  Sex: Female

DRUGS (22)
  1. AREDIA [Suspect]
     Indication: METASTASES TO BONE
     Route: 042
     Dates: start: 200010
  2. ZOMETA [Suspect]
     Indication: METASTASES TO BONE
     Dosage: 4 MG, QMO
     Route: 042
  3. TAMOXIFEN [Concomitant]
     Indication: BREAST CANCER METASTATIC
     Dates: start: 200010
  4. NAVELBINE [Concomitant]
  5. METHOTREXATE [Concomitant]
     Indication: BREAST CANCER METASTATIC
  6. TAXOL [Concomitant]
     Indication: BREAST CANCER METASTATIC
     Dates: start: 20001206
  7. RADIATION THERAPY [Concomitant]
     Dates: start: 20031008
  8. FASLODEX [Concomitant]
  9. IRESSA [Concomitant]
  10. VASOTEC [Concomitant]
  11. ABRAXANE [Concomitant]
  12. AVASTIN [Concomitant]
  13. LEXAPRO [Concomitant]
     Indication: DEPRESSION
  14. XELODA [Concomitant]
     Indication: BREAST CANCER METASTATIC
  15. GEMZAR [Concomitant]
  16. DILAUDID [Concomitant]
     Indication: PAIN MANAGEMENT
     Route: 058
  17. ACTIQ [Concomitant]
  18. EPIRUBICIN [Concomitant]
     Indication: BREAST CANCER METASTATIC
  19. CYTOXAN [Concomitant]
     Indication: BREAST CANCER METASTATIC
  20. ZYPREXA [Concomitant]
     Dosage: 15 MG, HS
     Route: 048
     Dates: start: 20071213
  21. ZOFRAN [Concomitant]
     Route: 042
     Dates: start: 20071214
  22. KLONOPIN [Concomitant]
     Dosage: 6 MG, QD
     Dates: start: 20071214

REACTIONS (107)
  - Death [Fatal]
  - Pyrexia [Unknown]
  - Mental status changes [Unknown]
  - Osteonecrosis of jaw [Unknown]
  - General physical health deterioration [Unknown]
  - Pain [Unknown]
  - Anxiety [Unknown]
  - Decreased interest [Unknown]
  - Pain in jaw [Unknown]
  - Dental caries [Unknown]
  - Jaw disorder [Unknown]
  - Exposed bone in jaw [Unknown]
  - Osteomyelitis [Unknown]
  - Insomnia [Unknown]
  - Inflammation [Unknown]
  - Tenderness [Unknown]
  - Ovarian mass [Unknown]
  - Abdominal mass [Recovering/Resolving]
  - Nausea [Recovering/Resolving]
  - Diarrhoea [Recovering/Resolving]
  - Large intestinal obstruction [Recovering/Resolving]
  - Fibrocystic breast disease [Unknown]
  - Anaemia [Unknown]
  - Metastases to bone [Unknown]
  - Bursitis [Unknown]
  - Ovarian cyst [Unknown]
  - Pericardial effusion [Unknown]
  - Scoliosis [Unknown]
  - Lumbar spinal stenosis [Unknown]
  - Perineurial cyst [Unknown]
  - Ascites [Unknown]
  - Hydronephrosis [Unknown]
  - Renal cyst [Unknown]
  - Pneumatosis intestinalis [Unknown]
  - Hepatic cyst [Unknown]
  - Intervertebral disc protrusion [Unknown]
  - Facet joint syndrome [Unknown]
  - Small intestinal obstruction [Unknown]
  - Ileus [Unknown]
  - Phlebolith [Unknown]
  - Osteoarthritis [Unknown]
  - Pleural effusion [Unknown]
  - Atelectasis [Unknown]
  - Soft tissue disorder [Unknown]
  - Facial bones fracture [Unknown]
  - Encephalomalacia [Unknown]
  - Skin lesion [Unknown]
  - Sepsis [Unknown]
  - Stupor [Unknown]
  - Aortic calcification [Unknown]
  - Tricuspid valve incompetence [Unknown]
  - Urinary retention [Unknown]
  - Pneumonia [Unknown]
  - Confusional state [Unknown]
  - Hepatic steatosis [Unknown]
  - Hepatomegaly [Unknown]
  - Upper respiratory tract infection [Unknown]
  - Thyroid neoplasm [Unknown]
  - Calcinosis [Unknown]
  - Haemorrhoidal haemorrhage [Unknown]
  - Dysuria [Unknown]
  - Diplopia [Unknown]
  - Decubitus ulcer [Unknown]
  - Candida infection [Unknown]
  - Fall [Unknown]
  - Dyspnoea [Unknown]
  - Back pain [Unknown]
  - Oral disorder [Unknown]
  - Erythema [Unknown]
  - Purulent discharge [Unknown]
  - Constipation [Unknown]
  - Bone pain [Unknown]
  - Oedema [Unknown]
  - Urinary tract infection [Unknown]
  - Cachexia [Unknown]
  - Neuropathy peripheral [Unknown]
  - Large intestinal stenosis [Unknown]
  - Seasonal allergy [Unknown]
  - Gastrointestinal carcinoma [Unknown]
  - Second primary malignancy [Unknown]
  - Convulsion [Unknown]
  - Lymphadenopathy [Unknown]
  - Vertebral foraminal stenosis [Unknown]
  - Lordosis [Unknown]
  - Nephrolithiasis [Unknown]
  - Pelvic fluid collection [Unknown]
  - Osteosclerosis [Unknown]
  - Cardiomegaly [Unknown]
  - Cholelithiasis [Unknown]
  - Myalgia [Unknown]
  - Arthralgia [Unknown]
  - Excessive granulation tissue [Unknown]
  - Splenic lesion [Unknown]
  - Aortic arteriosclerosis [Unknown]
  - Pulmonary mass [Unknown]
  - Device related infection [Unknown]
  - Renal disorder [Unknown]
  - Dehydration [Unknown]
  - Lethargy [Unknown]
  - Pyelonephritis [Unknown]
  - Local swelling [Unknown]
  - Abdominal distension [Unknown]
  - Vomiting [Unknown]
  - Sinus tachycardia [Unknown]
  - Gastric fistula [Unknown]
  - Melanocytic naevus [Unknown]
  - Metastases to lymph nodes [Unknown]
